FAERS Safety Report 14048164 (Version 2)
Quarter: 2017Q4

REPORT INFORMATION
  Report Type: Spontaneous
  Country: US (occurrence: US)
  Receive Date: 20171005
  Receipt Date: 20171024
  Transmission Date: 20180321
  Serious: Yes (Other)
  Sender: FDA-Public Use
  Company Number: US-EDGEWELL PERSONAL CARE, LLC-2028911

PATIENT
  Age: 24 Month
  Sex: Female

DRUGS (2)
  1. BANANA BOAT (AVOBENZONE\OCTOCRYLENE\OXYBENZONE) [Suspect]
     Active Substance: AVOBENZONE\OCTOCRYLENE\OXYBENZONE
     Indication: PROPHYLAXIS AGAINST SOLAR RADIATION
     Route: 061
     Dates: start: 20170923, end: 20170925
  2. FACE STICK OF SUNBLOCK [Concomitant]
     Route: 061

REACTIONS (7)
  - Dyspnoea [Unknown]
  - Pruritus [Unknown]
  - Pyrexia [Unknown]
  - Hypersensitivity [Unknown]
  - Skin irritation [Unknown]
  - Headache [Unknown]
  - Wheezing [Unknown]

NARRATIVE: CASE EVENT DATE: 20170925
